FAERS Safety Report 11256154 (Version 1)
Quarter: 2015Q3

REPORT INFORMATION
  Report Type: Spontaneous
  Country: US (occurrence: US)
  Receive Date: 20150709
  Receipt Date: 20150709
  Transmission Date: 20151125
  Serious: Yes (Other)
  Sender: FDA-Public Use
  Company Number: US-VIIV HEALTHCARE LIMITED-US2015GSK007420

PATIENT
  Age: 16 Year
  Sex: Male

DRUGS (6)
  1. ATOVAQUONE. [Concomitant]
     Active Substance: ATOVAQUONE
  2. COTRIMOXAZOLE [Suspect]
     Active Substance: SULFAMETHOXAZOLE\TRIMETHOPRIM
     Indication: PRODUCT USED FOR UNKNOWN INDICATION
  3. LAMIVUDINE. [Suspect]
     Active Substance: LAMIVUDINE
     Indication: HIV INFECTION
  4. DOLUTEGRAVIR [Suspect]
     Active Substance: DOLUTEGRAVIR
     Indication: HIV INFECTION
  5. ABACAVIR. [Suspect]
     Active Substance: ABACAVIR
     Indication: HIV INFECTION
  6. ACYCLOVIR. [Concomitant]
     Active Substance: ACYCLOVIR

REACTIONS (3)
  - Pancreatitis acute [Unknown]
  - Adverse event [Unknown]
  - Abdominal pain [Unknown]
